FAERS Safety Report 15834561 (Version 2)
Quarter: 2019Q1

REPORT INFORMATION
  Report Type: Spontaneous
  Country: US (occurrence: US)
  Receive Date: 20190116
  Receipt Date: 20190208
  Transmission Date: 20190417
  Serious: No
  Sender: FDA-Public Use
  Company Number: US-009507513-1901USA005709

PATIENT
  Sex: Female

DRUGS (1)
  1. BELSOMRA [Suspect]
     Active Substance: SUVOREXANT
     Indication: INSOMNIA
     Dosage: TAKE ONE TABLET BY MOUTH ONCE DAILY AT BEDTIME
     Route: 048

REACTIONS (3)
  - Feeling abnormal [Recovered/Resolved]
  - Impaired driving ability [Recovered/Resolved]
  - Memory impairment [Recovered/Resolved]
